FAERS Safety Report 6971896-4 (Version None)
Quarter: 2010Q3

REPORT INFORMATION
  Report Type: 
  Country: None (occurrence: None)
  Receive Date: 20100908
  Receipt Date: 20100831
  Transmission Date: 20110219
  Serious: Yes (Hospitalization, Other)
  Sender: FDA-Public Use
  Company Number: US-SANOFI-AVENTIS-2010SA052935

PATIENT
  Age: 45 Year
  Sex: Female

DRUGS (3)
  1. LANTUS [Suspect]
     Indication: TYPE 2 DIABETES MELLITUS
     Dosage: DOSE:35 UNIT(S)
     Route: 058
     Dates: start: 20030101
  2. OPTICLICK [Suspect]
     Indication: TYPE 2 DIABETES MELLITUS
  3. NOVOLOG [Suspect]

REACTIONS (3)
  - LEG AMPUTATION [None]
  - LOWER LIMB FRACTURE [None]
  - STAPHYLOCOCCAL INFECTION [None]
